FAERS Safety Report 4754424-3 (Version None)
Quarter: 2005Q3

REPORT INFORMATION
  Report Type: 
  Country: None (occurrence: None)
  Receive Date: 20050829
  Receipt Date: 20050712
  Transmission Date: 20060218
  Serious: Yes (Other)
  Sender: FDA-Public Use
  Company Number: JP-BOEHRINGER INGELHEIM PHARMACEUTICALS, INC.-2005-BP-12337NB

PATIENT
  Sex: Male
  Weight: 62 kg

DRUGS (5)
  1. MICARDIS [Suspect]
     Indication: HYPERTENSION
     Route: 048
     Dates: start: 20050606, end: 20050610
  2. FLOMOX [Concomitant]
     Indication: BRONCHITIS ACUTE
     Route: 048
     Dates: start: 20050606, end: 20050610
  3. MUCODYNE [Concomitant]
     Indication: BRONCHITIS ACUTE
     Route: 048
     Dates: start: 20050606, end: 20050610
  4. PL [Concomitant]
     Indication: BRONCHITIS ACUTE
     Route: 048
     Dates: start: 20050606, end: 20050610
  5. MEDICON [Concomitant]
     Indication: BRONCHITIS ACUTE
     Route: 048
     Dates: start: 20050606, end: 20050610

REACTIONS (1)
  - HEPATITIS [None]
